FAERS Safety Report 4298621-2 (Version None)
Quarter: 2004Q1

REPORT INFORMATION
  Report Type: 
  Country: None (occurrence: None)
  Receive Date: 20040218
  Receipt Date: 20030626
  Transmission Date: 20041129
  Serious: No
  Sender: FDA-Public Use
  Company Number: US-GLAXOSMITHKLINE-A0414053A

PATIENT
  Sex: Male

DRUGS (2)
  1. PAXIL [Suspect]
     Route: 048
     Dates: start: 20030101
  2. ALCOHOL [Suspect]
     Dates: start: 20030101, end: 20030101

REACTIONS (5)
  - BLOOD PRESSURE INCREASED [None]
  - DIARRHOEA [None]
  - DRUG INTERACTION [None]
  - SOMNOLENCE [None]
  - UNEXPECTED THERAPEUTIC DRUG EFFECT [None]
